FAERS Safety Report 20679586 (Version 3)
Quarter: 2022Q2

REPORT INFORMATION
  Report Type: Report from Study
  Country: IT (occurrence: IT)
  Receive Date: 20220406
  Receipt Date: 20220527
  Transmission Date: 20220720
  Serious: Yes (Death, Hospitalization)
  Sender: FDA-Public Use
  Company Number: IT-TAKEDA-2021TUS068555

PATIENT
  Sex: Female

DRUGS (1)
  1. HUMAN IMMUNOGLOBULIN G\HYALURONIDASE RECOMBINANT HUMAN [Suspect]
     Active Substance: HUMAN IMMUNOGLOBULIN G\HYALURONIDASE RECOMBINANT HUMAN
     Indication: Plasma cell myeloma
     Dosage: 25 GRAM, Q3WEEKS
     Route: 058
     Dates: end: 20220321

REACTIONS (4)
  - Condition aggravated [Fatal]
  - Adverse event [Recovering/Resolving]
  - COVID-19 [Not Recovered/Not Resolved]
  - Off label use [Unknown]

NARRATIVE: CASE EVENT DATE: 20220325
